FAERS Safety Report 4445393-4 (Version None)
Quarter: 2004Q3

REPORT INFORMATION
  Report Type: 
  Country: None (occurrence: None)
  Receive Date: 20040729
  Receipt Date: 20040121
  Transmission Date: 20050211
  Serious: Yes (Hospitalization)
  Sender: FDA-Public Use
  Company Number: 2004UW01088

PATIENT

DRUGS (1)
  1. ELAVIL [Suspect]
     Dosage: 750 MG PO
     Route: 048

REACTIONS (1)
  - OVERDOSE [None]
